FAERS Safety Report 4611071-1 (Version None)
Quarter: 2005Q1

REPORT INFORMATION
  Report Type: 
  Country: None (occurrence: None)
  Receive Date: 20050316
  Receipt Date: 20050316
  Transmission Date: 20050727
  Serious: Yes (Hospitalization)
  Sender: FDA-Public Use
  Company Number: None

PATIENT
  Age: 79 Year
  Sex: Male
  Weight: 71.6683 kg

DRUGS (10)
  1. INDOMETHACIN [Suspect]
     Indication: GOUT
     Dosage: 50 MG PO TID
     Route: 048
  2. ASPIRIN [Concomitant]
  3. FINASTERIDE [Concomitant]
  4. FUROSEMIDE [Concomitant]
  5. GLYBURIDE [Concomitant]
  6. INSULIN [Concomitant]
  7. LEVOTHYROXINE [Concomitant]
  8. OMEPRAZOLE [Concomitant]
  9. OXYBUTYNIN [Concomitant]
  10. TERAZOSIN [Concomitant]

REACTIONS (2)
  - PANCYTOPENIA [None]
  - UNEVALUABLE EVENT [None]
